FAERS Safety Report 7085636-4 (Version None)
Quarter: 2010Q4

REPORT INFORMATION
  Report Type: 
  Country: None (occurrence: None)
  Receive Date: 20101105
  Receipt Date: 20101026
  Transmission Date: 20110411
  Serious: Yes (Hospitalization)
  Sender: FDA-Public Use
  Company Number: NL-JNJFOC-20101100095

PATIENT
  Sex: Female
  Weight: 68 kg

DRUGS (3)
  1. REMICADE [Suspect]
     Indication: RHEUMATOID ARTHRITIS
     Dosage: 3 MG/KG
     Route: 042
  2. METHOTREXATE [Suspect]
     Indication: RHEUMATOID ARTHRITIS
     Dosage: 1X WEEK 4 TABL
     Route: 048
  3. NAPROXEN [Concomitant]
     Dosage: 2 TIMES PER 1 DAYS 500 MG
     Route: 048

REACTIONS (3)
  - HAEMOGLOBIN DECREASED [None]
  - NON-HODGKIN'S LYMPHOMA [None]
  - VAGINAL HAEMORRHAGE [None]
